FAERS Safety Report 10657889 (Version 3)
Quarter: 2014Q4

REPORT INFORMATION
  Report Type: Report from Study
  Country: US (occurrence: US)
  Receive Date: 20141217
  Receipt Date: 20141222
  Transmission Date: 20150529
  Serious: Yes (Hospitalization)
  Sender: FDA-Public Use
  Company Number: US-ABBVIE-14K-163-1309445-00

PATIENT
  Age: 56 Year
  Sex: Male
  Weight: 103.51 kg

DRUGS (3)
  1. LOVENOX [Concomitant]
     Active Substance: ENOXAPARIN SODIUM
     Indication: THROMBOSIS
     Route: 050
  2. HUMIRA [Suspect]
     Active Substance: ADALIMUMAB
     Indication: COLITIS ULCERATIVE
     Route: 058
     Dates: start: 201308
  3. LIALDA [Concomitant]
     Active Substance: MESALAMINE
     Indication: COLITIS ULCERATIVE

REACTIONS (9)
  - Pulmonary embolism [Recovered/Resolved]
  - Injection site pruritus [Recovered/Resolved]
  - Chest pain [Recovered/Resolved]
  - Muscle strain [Recovered/Resolved]
  - Injection site erythema [Unknown]
  - Injection site erythema [Recovered/Resolved]
  - Dyspnoea [Recovered/Resolved]
  - Injection site rash [Unknown]
  - Rash [Recovered/Resolved]

NARRATIVE: CASE EVENT DATE: 201410
